FAERS Safety Report 9159755 (Version 4)
Quarter: 2013Q2

REPORT INFORMATION
  Report Type: Report from Study
  Country: US (occurrence: US)
  Receive Date: 20130313
  Receipt Date: 20130502
  Transmission Date: 20140414
  Serious: No
  Sender: FDA-Public Use
  Company Number: US-VERTEX PHARMACEUTICALS INC.-2013-003399

PATIENT
  Age: 52 Year
  Sex: Female
  Weight: 70 kg

DRUGS (12)
  1. VX-950 (TELAPREVIR) [Suspect]
     Indication: HEPATITIS C
     Dosage: 750 MG, TID
     Route: 048
     Dates: start: 201303, end: 20130414
  2. PEGASYS [Suspect]
     Indication: HEPATITIS C
     Dosage: 180 ?G, QW
     Route: 058
     Dates: start: 201303, end: 20130414
  3. RIBAVIRIN [Suspect]
     Indication: HEPATITIS C
     Dosage: 400MG AM, 600MG PM
     Route: 048
     Dates: start: 201303, end: 20130414
  4. FIBERCON [Concomitant]
     Dosage: 625 MG, UNK
  5. VITAMIN C [Concomitant]
     Dosage: 500 MG, UNK
  6. MULTIVITAMIN [Concomitant]
  7. FISH OIL [Concomitant]
  8. MILK THISTLE [Concomitant]
  9. AMINO ACID [Concomitant]
  10. LYSINE [Concomitant]
     Dosage: 500 MG, UNK
  11. FOLIC ACID [Concomitant]
  12. ATARAX [Concomitant]

REACTIONS (7)
  - Hypersensitivity [Recovered/Resolved]
  - Rash maculo-papular [Recovered/Resolved]
  - Blister [Recovered/Resolved]
  - Haemorrhoidal haemorrhage [Recovered/Resolved]
  - Haemorrhoids [Unknown]
  - Anal pruritus [Unknown]
  - Pruritus [Recovered/Resolved]
